FAERS Safety Report 8120352 (Version 4)
Quarter: 2013Q3

REPORT INFORMATION
  Report Type: Spontaneous
  Country: DE (occurrence: DE)
  Receive Date: 20110906
  Receipt Date: 20130801
  Transmission Date: 20140515
  Serious: Yes (Hospitalization)
  Sender: FDA-Public Use
  Company Number: DE-JNJFOC-20110709076

PATIENT
  Sex: Female
  Weight: 116 kg

DRUGS (11)
  1. RISPERDAL CONSTA [Suspect]
     Indication: SCHIZOAFFECTIVE DISORDER
     Route: 030
     Dates: start: 20100302
  2. RISPERDAL CONSTA [Suspect]
     Indication: SCHIZOAFFECTIVE DISORDER
     Route: 030
     Dates: start: 20050707
  3. RISPERIDONE [Concomitant]
     Route: 048
  4. HYDROCHLOROTHIAZID [Concomitant]
     Route: 065
  5. SIMVABETA [Concomitant]
     Route: 065
  6. ENABETA [Concomitant]
     Route: 065
  7. NIFEDIPIN [Concomitant]
     Route: 065
  8. METFORMIN [Concomitant]
     Route: 065
  9. LEVEMIR [Concomitant]
     Route: 065
  10. NOVORAPID [Concomitant]
     Route: 065
  11. VICTOZA [Concomitant]
     Indication: DIABETES MELLITUS
     Route: 065

REACTIONS (4)
  - Hospitalisation [Unknown]
  - Psychotic disorder [Unknown]
  - Drug level decreased [Unknown]
  - Blood glucose increased [Unknown]
